FAERS Safety Report 4870564-2 (Version None)
Quarter: 2005Q4

REPORT INFORMATION
  Report Type: 
  Country: None (occurrence: None)
  Receive Date: 20051228
  Receipt Date: 20051215
  Transmission Date: 20060501
  Serious: Yes (Hospitalization)
  Sender: FDA-Public Use
  Company Number: US200512002815

PATIENT
  Age: 73 Year
  Sex: Female

DRUGS (10)
  1. FORTEO [Suspect]
     Indication: OSTEOPOROSIS
     Dates: start: 20051203
  2. FORTEO PEN (FORTEO PEN) PEN, DISPOSABLE [Concomitant]
  3. PLENDIL [Concomitant]
  4. SYNTHROID [Concomitant]
  5. LASIX (FUROSEMIDE, FUROSEMIDE SODIUM) [Concomitant]
  6. POTASSIUM CHLORIDE (POTASSIUM CHLORIDE UNKNOWN FORMULATION) [Concomitant]
  7. ASPIRIN [Concomitant]
  8. FISH OIL (FISH OIL) [Concomitant]
  9. ONCE-A-DAY (MINERALS NOS, VITAMINS NOS) [Concomitant]
  10. HYDROCODONE BITARTRATE [Concomitant]

REACTIONS (8)
  - BACK PAIN [None]
  - CONDITION AGGRAVATED [None]
  - HEADACHE [None]
  - MEDICAL DEVICE COMPLICATION [None]
  - NERVE COMPRESSION [None]
  - PAIN [None]
  - PHARMACEUTICAL PRODUCT COMPLAINT [None]
  - PROCEDURAL PAIN [None]
